FAERS Safety Report 7389768-2 (Version None)
Quarter: 2011Q1

REPORT INFORMATION
  Report Type: 
  Country: None (occurrence: None)
  Receive Date: 20110323
  Receipt Date: 20110307
  Transmission Date: 20110831
  Serious: Yes (Hospitalization, Other)
  Sender: FDA-Public Use
  Company Number: 2011SP010418

PATIENT
  Age: 32 Year
  Sex: Female

DRUGS (1)
  1. NUVARING [Suspect]
     Indication: CONTRACEPTION
     Dosage: VAG
     Route: 067

REACTIONS (5)
  - SUBARACHNOID HAEMORRHAGE [None]
  - CEREBRAL INFARCTION [None]
  - TRANSVERSE SINUS THROMBOSIS [None]
  - PARTIAL SEIZURES [None]
  - SUPERIOR SAGITTAL SINUS THROMBOSIS [None]
